FAERS Safety Report 5587052-0 (Version None)
Quarter: 2008Q1

REPORT INFORMATION
  Report Type: 
  Country: None (occurrence: None)
  Receive Date: 20080110
  Receipt Date: 20080103
  Transmission Date: 20080703
  Serious: Yes (Other)
  Sender: FDA-Public Use
  Company Number: B0361132A

PATIENT
  Age: 30 Year
  Sex: Female

DRUGS (6)
  1. PAROXETINE HYDROCHLORIDE [Suspect]
     Dosage: 20MG PER DAY
     Route: 065
     Dates: start: 19990225
  2. FLUOXETINE HCL [Concomitant]
     Route: 065
     Dates: start: 19920206
  3. MIANSERIN [Concomitant]
     Route: 065
  4. DOTHIEPIN HYDROCHLORIDE [Concomitant]
     Route: 065
  5. ZOLPIDEM [Concomitant]
     Route: 065
  6. CIPRAMIL [Concomitant]
     Dates: start: 20060101, end: 20070101

REACTIONS (11)
  - ANGER [None]
  - DEPRESSION [None]
  - DRUG WITHDRAWAL SYNDROME [None]
  - HYPERHIDROSIS [None]
  - INTENTIONAL SELF-INJURY [None]
  - MALAISE [None]
  - MOOD SWINGS [None]
  - PANIC ATTACK [None]
  - PARAESTHESIA [None]
  - SUICIDAL IDEATION [None]
  - TREMOR [None]
